FAERS Safety Report 5870414-1 (Version None)
Quarter: 2008Q3

REPORT INFORMATION
  Report Type: 
  Country: None (occurrence: None)
  Receive Date: 20080904
  Receipt Date: 20080306
  Transmission Date: 20090109
  Serious: No
  Sender: FDA-Public Use
  Company Number: US-BRISTOL-MYERS SQUIBB COMPANY-14103881

PATIENT
  Age: 53 Year
  Sex: Female

DRUGS (6)
  1. DEFINITY [Suspect]
     Indication: STRESS ECHOCARDIOGRAM
     Dates: start: 20080305
  2. FLONASE [Concomitant]
  3. ALBUTEROL [Concomitant]
  4. PRILOSEC [Concomitant]
  5. ULTRAM [Concomitant]
  6. ATROVENT [Concomitant]

REACTIONS (2)
  - ABDOMINAL DISCOMFORT [None]
  - BACK PAIN [None]
